FAERS Safety Report 15554486 (Version 3)
Quarter: 2018Q4

REPORT INFORMATION
  Report Type: Spontaneous
  Country: JP (occurrence: JP)
  Receive Date: 20181026
  Receipt Date: 20181119
  Transmission Date: 20190205
  Serious: Yes (Hospitalization)
  Sender: FDA-Public Use
  Company Number: JP-CELGENEUS-JPN-20181007865

PATIENT
  Age: 79 Year
  Sex: Male

DRUGS (20)
  1. ABRAXANE [Suspect]
     Active Substance: PACLITAXEL
     Dosage: 100 MILLIGRAM/SQ. METER
     Route: 042
     Dates: start: 20180717, end: 20180717
  2. CARBOPLATIN. [Concomitant]
     Active Substance: CARBOPLATIN
     Dosage: 5 AUC
     Route: 042
     Dates: start: 20180710, end: 20180710
  3. NIFEDIPINE. [Concomitant]
     Active Substance: NIFEDIPINE
     Indication: HYPERTENSION
     Dosage: 40 MILLIGRAM
     Route: 048
  4. ABRAXANE [Suspect]
     Active Substance: PACLITAXEL
     Dosage: 100 MILLIGRAM/SQ. METER
     Route: 042
     Dates: start: 20180625, end: 20180625
  5. CARBOPLATIN. [Concomitant]
     Active Substance: CARBOPLATIN
     Indication: NON-SMALL CELL LUNG CANCER
     Dosage: 5 AUC
     Route: 042
     Dates: start: 20180618, end: 20180618
  6. MEDI4736 (DURVALUMAB) [Concomitant]
     Active Substance: DURVALUMAB
     Indication: NON-SMALL CELL LUNG CANCER
     Dosage: 1500 MILLIGRAM
     Route: 042
     Dates: start: 20180618, end: 20180618
  7. ABRAXANE [Suspect]
     Active Substance: PACLITAXEL
     Dosage: 100 MILLIGRAM/SQ. METER
     Route: 042
     Dates: start: 20180809, end: 20180809
  8. MEDI4736 (DURVALUMAB) [Concomitant]
     Active Substance: DURVALUMAB
     Dosage: 1500 MILLIGRAM
     Route: 042
     Dates: start: 20180827, end: 20180827
  9. CARBOPLATIN. [Concomitant]
     Active Substance: CARBOPLATIN
     Dosage: 5 AUC
     Route: 042
     Dates: start: 20180802, end: 20180802
  10. CARBOPLATIN. [Concomitant]
     Active Substance: CARBOPLATIN
     Dosage: 5 AUC
     Route: 042
     Dates: start: 20180827, end: 20180827
  11. OXICONAZOLE NITRATE. [Concomitant]
     Active Substance: OXICONAZOLE NITRATE
     Indication: SKIN INFECTION
     Dosage: 1 GRAM
     Route: 003
     Dates: start: 20180827
  12. ABRAXANE [Suspect]
     Active Substance: PACLITAXEL
     Dosage: 100 MILLIGRAM/SQ. METER
     Route: 042
     Dates: start: 20180710, end: 20180710
  13. ABRAXANE [Suspect]
     Active Substance: PACLITAXEL
     Dosage: 100 MILLIGRAM/SQ. METER
     Route: 042
     Dates: start: 20180827, end: 20180827
  14. MEDI4736 (DURVALUMAB) [Concomitant]
     Active Substance: DURVALUMAB
     Dosage: 1500 MILLIGRAM
     Route: 042
     Dates: start: 20181019, end: 20181019
  15. MEDI4736 (DURVALUMAB) [Concomitant]
     Active Substance: DURVALUMAB
     Dosage: 1500 MILLIGRAM
     Route: 042
     Dates: start: 20180710, end: 20180710
  16. PREGABALIN. [Concomitant]
     Active Substance: PREGABALIN
     Indication: SPINAL COLUMN STENOSIS
     Dosage: 75 MILLIGRAM
     Route: 048
  17. ABRAXANE [Suspect]
     Active Substance: PACLITAXEL
     Indication: NON-SMALL CELL LUNG CANCER
     Dosage: 100 MILLIGRAM/SQ. METER
     Route: 042
     Dates: start: 20180618, end: 20180618
  18. ABRAXANE [Suspect]
     Active Substance: PACLITAXEL
     Dosage: 100 MILLIGRAM/SQ. METER
     Route: 042
     Dates: start: 20180802, end: 20180802
  19. MEDI4736 (DURVALUMAB) [Concomitant]
     Active Substance: DURVALUMAB
     Dosage: 1500 MILLIGRAM
     Route: 042
     Dates: start: 20180802, end: 20180802
  20. MEDI4736 (DURVALUMAB) [Concomitant]
     Active Substance: DURVALUMAB
     Dosage: 1500 MILLIGRAM
     Route: 042
     Dates: start: 20180918, end: 20180918

REACTIONS (1)
  - Hyperglycaemia [Recovered/Resolved]

NARRATIVE: CASE EVENT DATE: 20181016
